FAERS Safety Report 6404552-1 (Version None)
Quarter: 2009Q4

REPORT INFORMATION
  Report Type: 
  Country: None (occurrence: None)
  Receive Date: 20091016
  Receipt Date: 20091012
  Transmission Date: 20100525
  Serious: Yes (Death, Hospitalization)
  Sender: FDA-Public Use
  Company Number: PHHY2009MX40286

PATIENT
  Sex: Female

DRUGS (1)
  1. STALEVO 100 [Suspect]
     Dosage: 50/12.5/200 MG DAILY
     Route: 048
     Dates: start: 20090605, end: 20090808

REACTIONS (2)
  - RESPIRATORY ARREST [None]
  - SENILE DEMENTIA [None]
